FAERS Safety Report 15356356 (Version 1)
Quarter: 2018Q3

REPORT INFORMATION
  Report Type: Spontaneous
  Country: US (occurrence: US)
  Receive Date: 20180906
  Receipt Date: 20180906
  Transmission Date: 20181010
  Serious: Yes (Other)
  Sender: FDA-Public Use
  Company Number: US-PFIZER INC-2018356299

PATIENT
  Age: 70 Year
  Sex: Female
  Weight: 74.84 kg

DRUGS (2)
  1. LYRICA [Suspect]
     Active Substance: PREGABALIN
     Indication: NEUROPATHY PERIPHERAL
     Dosage: 150 MG, 3X/DAY
     Route: 048
  2. LYRICA [Suspect]
     Active Substance: PREGABALIN
     Dosage: 300 MG, DAILY(TAKING 2 CAPSULES A DAY)
     Route: 048

REACTIONS (4)
  - Psoriatic arthropathy [Unknown]
  - Intentional product misuse [Not Recovered/Not Resolved]
  - Poor quality sleep [Unknown]
  - Drug ineffective [Not Recovered/Not Resolved]

NARRATIVE: CASE EVENT DATE: 201805
